FAERS Safety Report 16598474 (Version 1)
Quarter: 2019Q3

REPORT INFORMATION
  Report Type: Spontaneous
  Country: US (occurrence: US)
  Receive Date: 20190719
  Receipt Date: 20190719
  Transmission Date: 20191004
  Serious: No
  Sender: FDA-Public Use
  Company Number: US-CELGENEUS-USA-20190705135

PATIENT
  Sex: Female

DRUGS (1)
  1. OTEZLA [Suspect]
     Active Substance: APREMILAST
     Indication: PRODUCT USED FOR UNKNOWN INDICATION
     Dosage: 60 MILLIGRAM
     Route: 048

REACTIONS (13)
  - Headache [Unknown]
  - Back pain [Unknown]
  - Heart rate irregular [Unknown]
  - Muscle spasms [Unknown]
  - Pollakiuria [Unknown]
  - Chest discomfort [Unknown]
  - Irritable bowel syndrome [Unknown]
  - Rhinorrhoea [Unknown]
  - Tinnitus [Unknown]
  - Hyperhidrosis [Unknown]
  - Dry skin [Unknown]
  - Haemorrhoids [Unknown]
  - Malaise [Unknown]
